FAERS Safety Report 7381768-1 (Version None)
Quarter: 2011Q1

REPORT INFORMATION
  Report Type: 
  Country: None (occurrence: None)
  Receive Date: 20110329
  Receipt Date: 20110315
  Transmission Date: 20110831
  Serious: Yes (Hospitalization)
  Sender: FDA-Public Use
  Company Number: US-JNJFOC-20110307576

PATIENT
  Sex: Male
  Weight: 58.11 kg

DRUGS (6)
  1. REMICADE [Suspect]
     Route: 042
  2. MERCAPTOPURINE [Concomitant]
  3. REMICADE [Suspect]
     Indication: CROHN'S DISEASE
     Route: 042
  4. REMICADE [Suspect]
     Route: 042
  5. PROBIOTICS [Concomitant]
  6. CORTICOSTEROIDS [Concomitant]
     Indication: PREMEDICATION

REACTIONS (2)
  - CROHN'S DISEASE [None]
  - CLOSTRIDIAL INFECTION [None]
